FAERS Safety Report 14559237 (Version 1)
Quarter: 2018Q1

REPORT INFORMATION
  Report Type: Spontaneous
  Country: US (occurrence: US)
  Receive Date: 20180221
  Receipt Date: 20180221
  Transmission Date: 20180509
  Serious: No
  Sender: FDA-Public Use
  Company Number: US-LYNE LABORATORIES INC.-2042420

PATIENT
  Age: 33 Year
  Sex: Female

DRUGS (1)
  1. FLUOCINOLONE ACETONIDE OIL, 0.01% (EAR DROPS) [Suspect]
     Active Substance: FLUOCINOLONE ACETONIDE
     Route: 001
     Dates: start: 20171121

REACTIONS (4)
  - Ear pain [Unknown]
  - Head discomfort [None]
  - Dizziness [Unknown]
  - Tinnitus [Unknown]

NARRATIVE: CASE EVENT DATE: 20171121
